FAERS Safety Report 7171325-4 (Version None)
Quarter: 2010Q4

REPORT INFORMATION
  Report Type: 
  Country: None (occurrence: None)
  Receive Date: 20101217
  Receipt Date: 20101214
  Transmission Date: 20110411
  Serious: Yes (Hospitalization)
  Sender: FDA-Public Use
  Company Number: DE-PFIZER INC-2007064943

PATIENT
  Sex: Male
  Weight: 76 kg

DRUGS (2)
  1. SUNITINIB MALATE [Suspect]
     Indication: METASTATIC RENAL CELL CARCINOMA
     Dosage: 50 MG, 1X/DAY
     Route: 048
     Dates: start: 20051221, end: 20060621
  2. SUNITINIB MALATE [Suspect]
     Dosage: 37.5 MG, 1X/DAY (4 WEEKS ON AND 2 WEEKS OFF)
     Route: 048
     Dates: start: 20060801, end: 20060829

REACTIONS (1)
  - CHOLECYSTITIS [None]
